FAERS Safety Report 25509556 (Version 2)
Quarter: 2025Q3

REPORT INFORMATION
  Report Type: Spontaneous
  Country: US (occurrence: US)
  Receive Date: 20250703
  Receipt Date: 20250716
  Transmission Date: 20251020
  Serious: Yes (Life-Threatening, Hospitalization)
  Sender: TEVA
  Company Number: US-TEVA-VS-3347857

PATIENT
  Age: 81 Year
  Sex: Male

DRUGS (1)
  1. MINOXIDIL [Suspect]
     Active Substance: MINOXIDIL
     Indication: Hypertension
     Route: 065

REACTIONS (9)
  - Pericardial effusion [Recovered/Resolved]
  - Left ventricular hypertrophy [Recovered/Resolved]
  - Jugular vein distension [Recovered/Resolved]
  - Left atrial dilatation [Recovered/Resolved]
  - Cardiac disorder [Recovered/Resolved]
  - Right ventricular diastolic collapse [Recovered/Resolved]
  - Cardiac tamponade [Recovered/Resolved]
  - Diastolic dysfunction [Recovered/Resolved]
  - Hypotension [Recovered/Resolved]
